FAERS Safety Report 5011105-9 (Version None)
Quarter: 2006Q2

REPORT INFORMATION
  Report Type: 
  Country: None (occurrence: None)
  Receive Date: 20060523
  Receipt Date: 20060520
  Transmission Date: 20061013
  Serious: Yes (Death, Hospitalization)
  Sender: FDA-Public Use
  Company Number: 222702

PATIENT
  Age: 73 Year
  Sex: Female

DRUGS (10)
  1. AVASTIN [Suspect]
     Indication: COLORECTAL CANCER METASTATIC
     Dosage: 560 MG, Q3W, INTRAVENOUS
     Route: 042
     Dates: start: 20060202
  2. CAPECITABINE (CAPECITABINE) [Suspect]
     Indication: COLORECTAL CANCER METASTATIC
     Dosage: 1800 MG, BID, ORAL
     Route: 048
     Dates: start: 20060202
  3. OXALIPLATIN(OXALIPLATIN) [Suspect]
     Indication: COLORECTAL CANCER METASTATIC
     Dosage: 240 MG, Q3W, INTRAVENOUS
     Route: 042
     Dates: start: 20060202
  4. ERBITUX [Suspect]
     Indication: COLORECTAL CANCER METASTATIC
     Dosage: 760 MG, Q3W, INTRAVENOUS
     Route: 042
     Dates: start: 20060202
  5. DICLOFENAC SODIUM [Concomitant]
  6. METOCLOPRAMIDE                (METOCLOPRAMIDE HYDROCHLORIDE) [Concomitant]
  7. PANTOPRAZOLE SODIUM [Concomitant]
  8. ZOFRAN [Concomitant]
  9. LOPERAMIDE [Concomitant]
  10. GENERIC COMPONENTS (GENERIC COMPONENT(S)) [Concomitant]

REACTIONS (2)
  - DIARRHOEA [None]
  - PERITONITIS [None]
